FAERS Safety Report 6257076-9 (Version None)
Quarter: 2009Q3

REPORT INFORMATION
  Report Type: 
  Country: None (occurrence: None)
  Receive Date: 20090706
  Receipt Date: 20090626
  Transmission Date: 20100115
  Serious: Yes (Hospitalization)
  Sender: FDA-Public Use
  Company Number: B0551326A

PATIENT
  Age: 39 Year
  Sex: Male

DRUGS (5)
  1. EPIVIR [Suspect]
     Indication: HIV INFECTION
     Dosage: 100MG THREE TIMES PER DAY
     Route: 048
     Dates: start: 20071113, end: 20080110
  2. STOCRIN [Concomitant]
     Indication: HIV INFECTION
     Dosage: 600MG PER DAY
     Route: 048
     Dates: start: 20071113
  3. ZERIT [Concomitant]
     Indication: HIV INFECTION
     Dosage: 60MG PER DAY
     Route: 048
     Dates: start: 20080111
  4. ZIAGEN [Concomitant]
     Indication: HIV INFECTION
     Dosage: 600MG PER DAY
     Route: 048
     Dates: start: 20071113
  5. NOVORAPID [Concomitant]
     Route: 058
     Dates: start: 20030101

REACTIONS (6)
  - BONE MARROW FAILURE [None]
  - DYSPNOEA EXERTIONAL [None]
  - HAEMOGLOBIN DECREASED [None]
  - NORMOCHROMIC NORMOCYTIC ANAEMIA [None]
  - PALPITATIONS [None]
  - PANCYTOPENIA [None]
